FAERS Safety Report 9628574 (Version 6)
Quarter: 2013Q4

REPORT INFORMATION
  Report Type: Report from Study
  Country: JP (occurrence: JP)
  Receive Date: 20131017
  Receipt Date: 20131223
  Transmission Date: 20140711
  Serious: Yes (Hospitalization)
  Sender: FDA-Public Use
  Company Number: JP-ASTRAZENECA-2013SE75944

PATIENT
  Age: 21095 Day
  Sex: Male
  Weight: 75 kg

DRUGS (39)
  1. CRESTOR [Suspect]
     Indication: HYPERCHOLESTEROLAEMIA
     Route: 048
     Dates: start: 20101016, end: 20120224
  2. CRESTOR [Suspect]
     Indication: HYPERCHOLESTEROLAEMIA
     Route: 048
     Dates: start: 20120225, end: 20120422
  3. CRESTOR [Suspect]
     Indication: HYPERCHOLESTEROLAEMIA
     Route: 048
     Dates: start: 20120423, end: 20120528
  4. CRESTOR [Suspect]
     Indication: HYPERCHOLESTEROLAEMIA
     Route: 048
     Dates: start: 20120529, end: 20121016
  5. CRESTOR [Suspect]
     Indication: HYPERCHOLESTEROLAEMIA
     Route: 048
     Dates: start: 20121017
  6. ACARDI [Concomitant]
     Route: 048
     Dates: start: 20100918
  7. BAYASPIRIN [Concomitant]
     Route: 048
     Dates: start: 20100918
  8. LASIX [Concomitant]
     Route: 048
     Dates: start: 20100918, end: 20110325
  9. ALDACTONE A [Concomitant]
     Indication: HYPERTENSION
     Route: 048
     Dates: start: 20100918
  10. MAINTATE [Concomitant]
     Indication: HYPERTENSION
     Route: 048
     Dates: start: 20100918, end: 20121016
  11. AMARYL [Concomitant]
     Indication: DIABETES MELLITUS
     Route: 048
     Dates: start: 20100918, end: 20101114
  12. AMARYL [Concomitant]
     Indication: DIABETES MELLITUS
     Route: 048
     Dates: start: 20110212, end: 20130506
  13. AMARYL [Concomitant]
     Indication: DIABETES MELLITUS
     Route: 048
     Dates: start: 20130507, end: 20130801
  14. AMARYL [Concomitant]
     Indication: DIABETES MELLITUS
     Route: 048
     Dates: start: 20130802
  15. AMLODIN OD [Concomitant]
     Route: 048
     Dates: start: 20100918, end: 20101224
  16. MICARDIS [Concomitant]
     Route: 048
     Dates: start: 20100710, end: 20101224
  17. NESINA [Concomitant]
     Route: 048
     Dates: start: 20100710, end: 20110211
  18. ACTOS [Concomitant]
     Route: 048
     Dates: start: 20100821, end: 20110624
  19. JANUVIA [Concomitant]
     Indication: DIABETES MELLITUS
     Route: 065
     Dates: start: 20110212, end: 20121016
  20. GLIMEPIRIDE [Concomitant]
     Route: 048
     Dates: start: 20110212, end: 20130506
  21. GLIMEPIRIDE [Concomitant]
     Route: 048
     Dates: start: 20130705
  22. CHAMPIX [Concomitant]
     Route: 048
     Dates: start: 20111018, end: 20111021
  23. CHAMPIX [Concomitant]
     Route: 048
     Dates: start: 20111022, end: 20111022
  24. CHAMPIX [Concomitant]
     Route: 048
     Dates: start: 20111023, end: 20111025
  25. CHAMPIX [Concomitant]
     Route: 048
     Dates: start: 20111102, end: 20111214
  26. FERROMIA [Concomitant]
     Route: 048
     Dates: start: 20120731, end: 20121016
  27. ASTAT:OINTMENT [Concomitant]
     Dosage: DOSE UNKNOWN
     Route: 062
     Dates: start: 20120529, end: 20120824
  28. MICAMLO [Concomitant]
     Indication: HYPERTENSION
     Route: 048
     Dates: start: 20101225
  29. PREMINENT [Concomitant]
     Indication: HYPERTENSION
     Route: 048
     Dates: start: 20120529, end: 20130804
  30. NEXIUM CAPSULES 20MG [Concomitant]
     Route: 048
     Dates: start: 20120731, end: 20120908
  31. PROMAC [Concomitant]
     Route: 048
     Dates: start: 20120731, end: 20120922
  32. EQUA [Concomitant]
     Indication: DIABETES MELLITUS
     Route: 048
     Dates: start: 20121017
  33. OVULANZE [Concomitant]
     Route: 048
     Dates: start: 20121017
  34. METGLUCO [Concomitant]
     Indication: DIABETES MELLITUS
     Route: 048
     Dates: start: 20120529
  35. ARZUMINE [Concomitant]
     Dosage: DOSE UNKNOWN
     Route: 048
     Dates: start: 20131019, end: 20131112
  36. LOPERAN [Concomitant]
     Dosage: DOSE UNKNOWN
     Route: 048
     Dates: start: 20130722, end: 201308
  37. ADSORBIN [Concomitant]
     Dosage: DOSE UNKNOWN
     Route: 065
     Dates: start: 20130722, end: 201308
  38. LEBENIN [Concomitant]
     Dosage: DOSE UNKNOWN
     Route: 065
     Dates: start: 20130722, end: 201308
  39. THIATON [Concomitant]
     Route: 048
     Dates: start: 20130722, end: 201308

REACTIONS (4)
  - Colon cancer [Recovered/Resolved]
  - Gastric ulcer [Recovered/Resolved]
  - Iron deficiency anaemia [Recovered/Resolved]
  - Gastroenteritis [Unknown]
